FAERS Safety Report 17467034 (Version 1)
Quarter: 2020Q1

REPORT INFORMATION
  Report Type: Other
  Country: US (occurrence: US)
  Receive Date: 20200227
  Receipt Date: 20200227
  Transmission Date: 20200409
  Serious: Yes (Death)
  Sender: FDA-Public Use
  Company Number: US-ACORDA-ACO_163813_2020

PATIENT
  Age: 76 Year

DRUGS (1)
  1. AMPYRA [Suspect]
     Active Substance: DALFAMPRIDINE
     Indication: PRODUCT USED FOR UNKNOWN INDICATION
     Dosage: 10 MILLIGRAM, BID WITH MEALS
     Route: 048
     Dates: start: 20160825, end: 20200115

REACTIONS (2)
  - Therapy cessation [Unknown]
  - Death [Fatal]

NARRATIVE: CASE EVENT DATE: 20200115
